FAERS Safety Report 7883810-8 (Version None)
Quarter: 2011Q4

REPORT INFORMATION
  Report Type: 
  Country: None (occurrence: None)
  Receive Date: 20111102
  Receipt Date: 20111025
  Transmission Date: 20120403
  Serious: Yes (Death, Hospitalization)
  Sender: FDA-Public Use
  Company Number: US-ACTELION-A-US2011-54854

PATIENT

DRUGS (5)
  1. TRACLEER [Suspect]
     Indication: PULMONARY ARTERIAL HYPERTENSION
     Dosage: UNK MG, UNK
     Route: 048
     Dates: start: 20081209, end: 20110101
  2. OXYGEN [Concomitant]
  3. PREDNISONE [Concomitant]
  4. REVATIO [Concomitant]
  5. METHOTREXATE [Concomitant]

REACTIONS (3)
  - CARDIOGENIC SHOCK [None]
  - MULTI-ORGAN FAILURE [None]
  - ACUTE RESPIRATORY FAILURE [None]
